FAERS Safety Report 25791866 (Version 2)
Quarter: 2025Q3

REPORT INFORMATION
  Report Type: Spontaneous
  Country: US (occurrence: US)
  Receive Date: 20250911
  Receipt Date: 20250916
  Transmission Date: 20251021
  Serious: No
  Sender: SANOFI AVENTIS
  Company Number: US-SANOFI-02643528

PATIENT
  Sex: Male

DRUGS (1)
  1. DUPIXENT [Suspect]
     Active Substance: DUPILUMAB
     Indication: Chronic obstructive pulmonary disease

REACTIONS (7)
  - Drug eruption [Unknown]
  - Fatigue [Unknown]
  - Malaise [Unknown]
  - Headache [Unknown]
  - Injection site bruising [Unknown]
  - Injection site rash [Unknown]
  - Wrong technique in product usage process [Unknown]
